FAERS Safety Report 14981404 (Version 1)
Quarter: 2018Q2

REPORT INFORMATION
  Report Type: Report from Study
  Country: None (occurrence: RO)
  Receive Date: 20180606
  Receipt Date: 20180606
  Transmission Date: 20180711
  Serious: Yes (Other)
  Sender: FDA-Public Use
  Company Number: RO-ABBVIE-18K-135-2378103-00

PATIENT
  Age: 62 Year
  Sex: Female

DRUGS (2)
  1. DERMOVATE [Concomitant]
     Active Substance: CLOBETASOL
     Indication: PSORIASIS
  2. HUMIRA [Suspect]
     Active Substance: ADALIMUMAB
     Indication: PSORIASIS
     Route: 058
     Dates: start: 20180315, end: 20180426

REACTIONS (1)
  - Hepatitis B core antibody positive [Not Recovered/Not Resolved]

NARRATIVE: CASE EVENT DATE: 20180510
